FAERS Safety Report 22241773 (Version 4)
Quarter: 2023Q2

REPORT INFORMATION
  Report Type: Report from Study
  Country: KR (occurrence: KR)
  Receive Date: 20230421
  Receipt Date: 20230616
  Transmission Date: 20230722
  Serious: Yes (Hospitalization)
  Sender: FDA-Public Use
  Company Number: KR-BEIGENE-BGN-2023-002949

PATIENT
  Age: 45 Year
  Sex: Female
  Weight: 38.5 kg

DRUGS (12)
  1. TISLELIZUMAB [Suspect]
     Active Substance: TISLELIZUMAB
     Indication: Adenocarcinoma gastric
     Dosage: 200 MG, Q3W
     Route: 042
     Dates: start: 20230316
  2. TISLELIZUMAB [Suspect]
     Active Substance: TISLELIZUMAB
     Dosage: 200 MG, Q3W
     Route: 042
     Dates: start: 20230407
  3. ZANIDATAMAB [Suspect]
     Active Substance: ZANIDATAMAB
     Indication: Adenocarcinoma gastric
     Dosage: 1800 MG, Q3W
     Route: 042
     Dates: start: 20230316
  4. ZANIDATAMAB [Suspect]
     Active Substance: ZANIDATAMAB
     Dosage: 1800 MG, Q3W
     Route: 042
     Dates: start: 20230407
  5. CAPECITABINE [Suspect]
     Active Substance: CAPECITABINE
     Indication: Adenocarcinoma gastric
     Dosage: 750 MILLIGRAM/SQ. METER, BID 2 WEEKS
     Route: 042
     Dates: start: 20230316
  6. CAPECITABINE [Suspect]
     Active Substance: CAPECITABINE
     Dosage: 750 MILLIGRAM/SQ. METER, BID 2 WEEKS
     Route: 042
     Dates: start: 20230410
  7. URSODIOL [Concomitant]
     Active Substance: URSODIOL
     Indication: Aspartate aminotransferase increased
     Dosage: 100 MG, TID
     Route: 065
     Dates: start: 20230406
  8. URSODIOL [Concomitant]
     Active Substance: URSODIOL
     Indication: Alanine aminotransferase increased
  9. GODEX [Concomitant]
     Indication: Aspartate aminotransferase increased
     Dosage: 1C TID
     Route: 065
     Dates: start: 20230406
  10. GODEX [Concomitant]
     Indication: Alanine aminotransferase increased
  11. LAMINA-G [Concomitant]
     Indication: Dyspepsia
     Dosage: UNK UNK, QID
     Route: 065
     Dates: start: 20230221
  12. NORVASC [Concomitant]
     Active Substance: AMLODIPINE BESYLATE
     Indication: Hypertension
     Dosage: UNK, QD
     Route: 065
     Dates: start: 20230406

REACTIONS (1)
  - Pyelonephritis acute [Recovered/Resolved]

NARRATIVE: CASE EVENT DATE: 20230410
